FAERS Safety Report 20993903 (Version 2)
Quarter: 2022Q3

REPORT INFORMATION
  Report Type: Spontaneous
  Country: US (occurrence: US)
  Receive Date: 20220622
  Receipt Date: 20220809
  Transmission Date: 20221027
  Serious: No
  Sender: FDA-Public Use
  Company Number: US-BRISTOL-MYERS SQUIBB COMPANY-2022-061553

PATIENT
  Age: 63 Year
  Sex: Female

DRUGS (2)
  1. REVLIMID [Suspect]
     Active Substance: LENALIDOMIDE
     Indication: Product used for unknown indication
     Dosage: DAILY
     Route: 048
     Dates: start: 202108
  2. REVLIMID [Suspect]
     Active Substance: LENALIDOMIDE
     Dosage: FREQUENCY- OTHER.
     Route: 048
     Dates: start: 202106

REACTIONS (2)
  - Treatment noncompliance [Unknown]
  - No adverse event [Unknown]

NARRATIVE: CASE EVENT DATE: 20220620
